FAERS Safety Report 8131502-2 (Version None)
Quarter: 2012Q1

REPORT INFORMATION
  Report Type: 
  Country: None (occurrence: None)
  Receive Date: 20120103
  Receipt Date: 20110830
  Transmission Date: 20120608
  Serious: No
  Sender: FDA-Public Use
  Company Number: AE-2011-001213

PATIENT
  Age: 46 Year
  Sex: Female
  Weight: 136.0791 kg

DRUGS (6)
  1. 70/30 INSULIN (INSULIN) [Concomitant]
  2. AMLODIPINE [Concomitant]
  3. INCIVEK [Suspect]
     Dosage: 2250 MG (750 MG,3 IN 1 D)
     Dates: start: 20110705, end: 20110809
  4. METOPROLOL TARTRATE [Concomitant]
  5. RIBAVIRIN [Concomitant]
  6. PEGASUS (PEGINTERFERON ALFA-2A) [Concomitant]

REACTIONS (3)
  - VULVOVAGINAL MYCOTIC INFECTION [None]
  - PRURITUS [None]
  - WHITE BLOOD CELL COUNT DECREASED [None]
